FAERS Safety Report 5447664-1 (Version None)
Quarter: 2007Q3

REPORT INFORMATION
  Report Type: 
  Country: None (occurrence: None)
  Receive Date: 20070910
  Receipt Date: 20070910
  Transmission Date: 20080115
  Serious: Yes (Other)
  Sender: FDA-Public Use
  Company Number: A0679600A

PATIENT
  Age: 70 Year
  Sex: Female

DRUGS (1)
  1. CITRUCEL REGULAR SUSPENSION [Suspect]

REACTIONS (1)
  - CHOKING [None]
